FAERS Safety Report 6743802-9 (Version None)
Quarter: 2010Q2

REPORT INFORMATION
  Report Type: 
  Country: None (occurrence: None)
  Receive Date: 20100527
  Receipt Date: 20100324
  Transmission Date: 20101027
  Serious: No
  Sender: FDA-Public Use
  Company Number: US-KINGPHARMUSA00001-K201000360

PATIENT
  Age: 59 Year
  Sex: Female
  Weight: 61.224 kg

DRUGS (3)
  1. FLECTOR [Suspect]
     Indication: MUSCULOSKELETAL DISCOMFORT
     Dosage: 1 PATCH, SINGLE
     Route: 061
     Dates: start: 20100301, end: 20100301
  2. LACTULOSE [Concomitant]
     Indication: IMPAIRED GASTRIC EMPTYING
     Dosage: 1 TABLESPOON
     Route: 048
  3. VITAMINS [Concomitant]
     Dosage: UNK

REACTIONS (1)
  - ERYTHEMA [None]
